FAERS Safety Report 4312082-6 (Version None)
Quarter: 2004Q1

REPORT INFORMATION
  Report Type: 
  Country: None (occurrence: None)
  Receive Date: 20040303
  Receipt Date: 20040216
  Transmission Date: 20041129
  Serious: Yes (Hospitalization, Disabling)
  Sender: FDA-Public Use
  Company Number: 2004-BP-00423MX

PATIENT
  Age: 36 Year
  Sex: Male

DRUGS (4)
  1. VIRAMUNE TABLETS (NEVIRAPINE) (TA) [Suspect]
     Indication: HIV INFECTION
     Dosage: 200 MG (200 MG, 1 TA OD)) PO
     Route: 048
     Dates: start: 20040111
  2. AMPRENAVIR (AMPRENAVIR) (KA) [Suspect]
     Indication: HIV INFECTION
     Dosage: 1200 MG (600 MG, 2 KA B.I.D.) PO
     Route: 048
     Dates: start: 20040111
  3. LOPINAVIR AND RITONAVIR (KALETRA) (KA) [Concomitant]
  4. ACICLOVIR (ACICLOVIR) (NR) [Concomitant]

REACTIONS (3)
  - BLOOD POTASSIUM DECREASED [None]
  - DIARRHOEA [None]
  - MYOPATHY [None]
